FAERS Safety Report 8158611-6 (Version None)
Quarter: 2012Q1

REPORT INFORMATION
  Report Type: 
  Country: None (occurrence: None)
  Receive Date: 20120217
  Receipt Date: 20120206
  Transmission Date: 20120608
  Serious: Yes (Other)
  Sender: FDA-Public Use
  Company Number: 2012MA001620

PATIENT
  Age: 35 Year
  Sex: Female
  Weight: 83.9154 kg

DRUGS (14)
  1. METOCLOPRAMIDE [Suspect]
     Indication: PRODUCT USED FOR UNKNOWN INDICATION
     Dosage: 10 MG
     Dates: start: 20051128, end: 20070801
  2. ALBUTEROL [Concomitant]
  3. CARISOPRODOL [Concomitant]
  4. AMPHETAMIN SALTS [Concomitant]
  5. IBUPROFEN [Concomitant]
  6. LIDODERM [Concomitant]
  7. AZITHROMYCIN [Concomitant]
  8. BUMETANIDE [Concomitant]
  9. HALDOL [Concomitant]
  10. CYCLOBENZAPRINE [Concomitant]
  11. FLUCONAZOLE [Concomitant]
  12. ALPRAZOLAM [Concomitant]
  13. LYRICA [Concomitant]
  14. METFORMIN HCL [Concomitant]

REACTIONS (8)
  - CHOREA [None]
  - ANXIETY [None]
  - EMOTIONAL DISORDER [None]
  - STEREOTYPY [None]
  - AKATHISIA [None]
  - ECONOMIC PROBLEM [None]
  - TARDIVE DYSKINESIA [None]
  - PAIN [None]
